FAERS Safety Report 9292723 (Version 1)
Quarter: 2013Q2

REPORT INFORMATION
  Report Type: Spontaneous
  Country: US (occurrence: None)
  Receive Date: 20130515
  Receipt Date: 20130515
  Transmission Date: 20140414
  Serious: Yes (Hospitalization)
  Sender: FDA-Public Use
  Company Number: None

PATIENT
  Age: 73 Year
  Sex: Female
  Weight: 57.61 kg

DRUGS (1)
  1. MONUROL [Suspect]
     Indication: URINARY TRACT INFECTION
     Dosage: TAKEN 2X^S
     Dates: start: 20130312, end: 20130315

REACTIONS (5)
  - Pyrexia [None]
  - Diarrhoea [None]
  - Abdominal pain upper [None]
  - Headache [None]
  - Clostridium difficile infection [None]
